FAERS Safety Report 15083203 (Version 1)
Quarter: 2018Q2

REPORT INFORMATION
  Report Type: Spontaneous
  Country: ZA (occurrence: ZA)
  Receive Date: 20180628
  Receipt Date: 20180628
  Transmission Date: 20180711
  Serious: Yes (Hospitalization)
  Sender: FDA-Public Use
  Company Number: ZA-PFIZER INC-2018246927

PATIENT
  Age: 32 Year
  Sex: Female

DRUGS (8)
  1. EPITEC [Concomitant]
     Active Substance: LAMOTRIGINE
     Dosage: 100 MG, UNK
  2. ASPAVOR [Concomitant]
     Active Substance: ATORVASTATIN
     Dosage: 20 MG, UNK
  3. SANDOZ OMEPRAZOLE [Concomitant]
     Active Substance: OMEPRAZOLE
     Dosage: 20 MG, UNK
  4. BILOCOR [Concomitant]
     Active Substance: BISOPROLOL FUMARATE
     Dosage: 5 MG, UNK
  5. METHOTREXATE. [Concomitant]
     Active Substance: METHOTREXATE
     Dosage: 2.5 MG, UNK
  6. EUTHYROX [Concomitant]
     Active Substance: LEVOTHYROXINE SODIUM
     Dosage: 75 UG, UNK
  7. EXSIRA [Suspect]
     Active Substance: DESVENLAFAXINE SUCCINATE
     Dosage: 50 MG, UNK
  8. ARCOXIA [Concomitant]
     Active Substance: ETORICOXIB
     Dosage: 90 MG, UNK

REACTIONS (1)
  - Aggression [Unknown]
